FAERS Safety Report 21492101 (Version 1)
Quarter: 2022Q4

REPORT INFORMATION
  Report Type: Report from Study
  Country: IT (occurrence: IT)
  Receive Date: 20221021
  Receipt Date: 20221021
  Transmission Date: 20230112
  Serious: Yes (Other)
  Sender: FDA-Public Use
  Company Number: IT-SUN PHARMACEUTICAL INDUSTRIES LTD-2022R1-360261

PATIENT
  Age: 41 Year
  Sex: Female

DRUGS (4)
  1. PACLITAXEL [Suspect]
     Active Substance: PACLITAXEL
     Indication: Squamous cell carcinoma
     Dosage: 175 MILLIGRAM/SQ. METER
     Route: 065
  2. PACLITAXEL [Suspect]
     Active Substance: PACLITAXEL
     Dosage: 135 MILLIGRAM/SQ. METER
     Route: 065
  3. CARBOPLATIN [Suspect]
     Active Substance: CARBOPLATIN
     Indication: Squamous cell carcinoma
     Dosage: 5 AUC
     Route: 065
  4. CARBOPLATIN [Suspect]
     Active Substance: CARBOPLATIN
     Dosage: 4 AUC
     Route: 065

REACTIONS (3)
  - Premature delivery [Unknown]
  - Foetal growth restriction [Unknown]
  - Exposure during pregnancy [Unknown]
